FAERS Safety Report 4458971-3 (Version None)
Quarter: 2004Q3

REPORT INFORMATION
  Report Type: 
  Country: None (occurrence: None)
  Receive Date: 20040920
  Receipt Date: 20040920
  Transmission Date: 20050211
  Serious: Yes (Hospitalization)
  Sender: FDA-Public Use
  Company Number: None

PATIENT
  Age: 69 Year
  Sex: Female

DRUGS (2)
  1. OXALIPLATIN 85 MG/M2 [Suspect]
     Indication: MALIGNANT MELANOMA
     Dosage: 145 MG
     Dates: start: 20040826
  2. TAXOTERE [Suspect]
     Indication: MALIGNANT MELANOMA
     Dosage: 145 MG
     Dates: start: 20040826

REACTIONS (1)
  - FEBRILE NEUTROPENIA [None]
